FAERS Safety Report 4450956-6 (Version None)
Quarter: 2004Q3

REPORT INFORMATION
  Report Type: 
  Country: None (occurrence: None)
  Receive Date: 20040916
  Receipt Date: 20040205
  Transmission Date: 20050211
  Serious: Yes (Other)
  Sender: FDA-Public Use
  Company Number: US-BRISTOL-MYERS SQUIBB COMPANY-12497608

PATIENT
  Age: 40 Year
  Sex: Male

DRUGS (4)
  1. STADOL [Suspect]
     Route: 045
     Dates: start: 19960131
  2. STADOL [Suspect]
     Dosage: DURATION: MORE THAN THREE YEARS
     Route: 030
  3. HYDROCODONE [Concomitant]
  4. CARISOPRODOL [Concomitant]

REACTIONS (1)
  - DEPENDENCE [None]
